FAERS Safety Report 20784007 (Version 1)
Quarter: 2022Q2

REPORT INFORMATION
  Report Type: Spontaneous
  Country: US (occurrence: US)
  Receive Date: 20220504
  Receipt Date: 20220504
  Transmission Date: 20220721
  Serious: Yes (Other)
  Sender: FDA-Public Use
  Company Number: US-SCIEGENP-2022SCLIT00348

PATIENT
  Age: 42 Year
  Sex: Female

DRUGS (5)
  1. CLOPIDOGREL [Suspect]
     Active Substance: CLOPIDOGREL BISULFATE
     Indication: Coronary artery dissection
     Route: 065
  2. ASPIRIN [Suspect]
     Active Substance: ASPIRIN
     Indication: Coronary artery dissection
     Route: 065
  3. CARVEDILOL [Suspect]
     Active Substance: CARVEDILOL
     Indication: Coronary artery dissection
     Route: 065
  4. CARVEDILOL [Suspect]
     Active Substance: CARVEDILOL
     Indication: Coronary artery dissection
  5. LISINOPRIL [Suspect]
     Active Substance: LISINOPRIL
     Indication: Coronary artery dissection
     Route: 065

REACTIONS (4)
  - Cardiac failure [Recovered/Resolved]
  - Ischaemic cardiomyopathy [Recovered/Resolved]
  - Treatment failure [Unknown]
  - Disease recurrence [Unknown]
